FAERS Safety Report 13027441 (Version 1)
Quarter: 2016Q4

REPORT INFORMATION
  Report Type: Report from Study
  Country: None (occurrence: BR)
  Receive Date: 20161214
  Receipt Date: 20161214
  Transmission Date: 20170207
  Serious: Yes (Death)
  Sender: FDA-Public Use
  Company Number: BR-ABBVIE-16K-020-1809858-00

PATIENT
  Age: 30 Year
  Sex: Male

DRUGS (1)
  1. HUMIRA [Suspect]
     Active Substance: ADALIMUMAB
     Indication: RHEUMATOID ARTHRITIS
     Route: 058
     Dates: end: 20161024

REACTIONS (2)
  - Pain [Fatal]
  - Self-medication [Fatal]

NARRATIVE: CASE EVENT DATE: 2016
